FAERS Safety Report 10747810 (Version 3)
Quarter: 2015Q4

REPORT INFORMATION
  Report Type: Spontaneous
  Country: US (occurrence: US)
  Receive Date: 20150129
  Receipt Date: 20151203
  Transmission Date: 20160304
  Serious: No
  Sender: FDA-Public Use
  Company Number: US-PFIZER INC-2015032690

PATIENT
  Age: 61 Year
  Sex: Female

DRUGS (31)
  1. TRAMADOL. [Concomitant]
     Active Substance: TRAMADOL
     Dosage: UNK (325 MG 2 TABS (EVERY 4 TO 6 HRS))
  2. FORADIL [Concomitant]
     Active Substance: FORMOTEROL FUMARATE
     Dosage: 12 UG, 1X/DAY (12 MCG INHALATION CAP 1 CAPS (INHALED ONCE A DAY IN THE MORNING))
     Route: 045
  3. B3 [Concomitant]
     Dosage: 1000 IU, 1X/DAY
  4. ALLEGRA [Concomitant]
     Active Substance: FEXOFENADINE HYDROCHLORIDE
     Dosage: UNK
  5. LEVAQUIN [Concomitant]
     Active Substance: LEVOFLOXACIN
     Indication: MALAISE
     Dosage: 500 MG, AS NEEDED
  6. SULFAMETHOXAZOLE AND TRIMETHOPRIM DOUBLE STRENGTH [Concomitant]
     Active Substance: SULFAMETHOXAZOLE\TRIMETHOPRIM
     Indication: MALAISE
     Dosage: UNK, AS NEEDED
  7. IPRATROPIUM [Concomitant]
     Active Substance: IPRATROPIUM
     Indication: MALAISE
     Dosage: 25 ML, UNK (INH SOLIN 25X 25 ML)
  8. BUSPAR [Concomitant]
     Active Substance: BUSPIRONE HYDROCHLORIDE
     Dosage: 15 MG, 2X/DAY
  9. LOPID [Concomitant]
     Active Substance: GEMFIBROZIL
     Dosage: 600 MG, 2X/DAY
  10. CIPROFLOXACIN HCL [Concomitant]
     Active Substance: CIPROFLOXACIN HYDROCHLORIDE
     Indication: MALAISE
     Dosage: 250 MG, AS NEEDED
  11. ALBUTEROL. [Concomitant]
     Active Substance: ALBUTEROL
     Indication: MALAISE
     Dosage: UNK UNK, AS NEEDED
  12. FISH OIL [Concomitant]
     Active Substance: FISH OIL
     Dosage: UNK UNK, 1X/DAY (1000)
  13. PHENERGAN W/ CODEINE [Concomitant]
     Active Substance: CODEINE PHOSPHATE\PROMETHAZINE HYDROCHLORIDE
     Indication: MALAISE
     Dosage: UNK, AS NEEDED
  14. PSEUDOVENT [Concomitant]
     Indication: MALAISE
     Dosage: UNK (120 - 400 MG ER CAPS)
  15. AROMASIN [Suspect]
     Active Substance: EXEMESTANE
     Indication: BREAST CANCER
     Dosage: 25 MG, DAILY
     Route: 048
     Dates: start: 2011
  16. AROMASIN [Suspect]
     Active Substance: EXEMESTANE
     Indication: BREAST DYSPLASIA
  17. FLOVENT HFA [Concomitant]
     Active Substance: FLUTICASONE PROPIONATE
     Dosage: UNK, 2X/DAY (220 MCG, 1 NH- 2 PUFFS )
  18. ZESTRIL [Concomitant]
     Active Substance: LISINOPRIL
     Dosage: 40 MG, 2X/DAY
  19. D3 [Concomitant]
     Active Substance: 25-HYDROXYCHOLECALCIFEROL, 5-TRANS-
     Dosage: UNK UNK, 1X/DAY
  20. WELLBUTRIN [Concomitant]
     Active Substance: BUPROPION HYDROCHLORIDE
     Dosage: 150 MG, 2X/DAY
  21. FLEXERIL [Concomitant]
     Active Substance: CYCLOBENZAPRINE HYDROCHLORIDE
     Dosage: 10 MG, 3X/DAY
  22. MAGNESIUM [Concomitant]
     Active Substance: MAGNESIUM
     Dosage: 250 MG, 1X/DAY
  23. FEXOFENADINE [Concomitant]
     Active Substance: FEXOFENADINE\FEXOFENADINE HYDROCHLORIDE
     Dosage: 180 MG, UNK (1X 3 A DAY)
  24. PROAIR HFA [Concomitant]
     Active Substance: ALBUTEROL SULFATE
     Indication: MALAISE
     Dosage: 8.5 G, AS NEEDED
  25. ASPIRIN. [Concomitant]
     Active Substance: ASPIRIN
     Dosage: 81 MG, 1X/DAY
  26. SINGULAIR [Concomitant]
     Active Substance: MONTELUKAST SODIUM
     Dosage: 10 MG, 1X/DAY
  27. ZETIA [Concomitant]
     Active Substance: EZETIMIBE
     Dosage: 10 MG, 1X/DAY
  28. DOXYCYCLINE. [Concomitant]
     Active Substance: DOXYCYCLINE
     Indication: MALAISE
     Dosage: 100 MG, AS NEEDED
  29. DIFLUCAN [Concomitant]
     Active Substance: FLUCONAZOLE
     Indication: MALAISE
     Dosage: 100 MG, AS NEEDED
  30. TRIAMTERENE. [Concomitant]
     Active Substance: TRIAMTERENE
     Dosage: 25 MG, 1X/DAY
  31. DESONIDE. [Concomitant]
     Active Substance: DESONIDE
     Dosage: UNK, AS NEEDED (0.05 % AND 0.5% (WHEN NEEDED FOR FACE) )

REACTIONS (3)
  - Product use issue [Unknown]
  - Rash [Recovered/Resolved]
  - Drug hypersensitivity [Unknown]

NARRATIVE: CASE EVENT DATE: 201404
